FAERS Safety Report 25158504 (Version 1)
Quarter: 2025Q2

REPORT INFORMATION
  Report Type: Spontaneous
  Country: US (occurrence: US)
  Receive Date: 20250404
  Receipt Date: 20250404
  Transmission Date: 20250716
  Serious: Yes (Other)
  Sender: BRISTOL MYERS SQUIBB
  Company Number: US-BRISTOL-MYERS SQUIBB COMPANY-2025-047007

PATIENT
  Age: 72 Year
  Sex: Male

DRUGS (16)
  1. LENALIDOMIDE [Suspect]
     Active Substance: LENALIDOMIDE
     Indication: Plasma cell myeloma
     Route: 048
  2. TYLENOL EXTRA STRENGTH [Concomitant]
     Active Substance: ACETAMINOPHEN
  3. CYCLOBENZAPRINE HYDROCHLORIDE [Concomitant]
     Active Substance: CYCLOBENZAPRINE HYDROCHLORIDE
  4. ACYCLOVIR [Concomitant]
     Active Substance: ACYCLOVIR
  5. LIDOCAINE HYDROCHLORIDE [Concomitant]
     Active Substance: LIDOCAINE HYDROCHLORIDE
  6. CELEBREX [Concomitant]
     Active Substance: CELECOXIB
  7. GABAPENTIN [Concomitant]
     Active Substance: GABAPENTIN
  8. DEXAMETHASONE [Concomitant]
     Active Substance: DEXAMETHASONE
  9. ONDANSETRON HYDROCHLORIDE [Concomitant]
     Active Substance: ONDANSETRON HYDROCHLORIDE
  10. FOLIC ACID [Concomitant]
     Active Substance: FOLIC ACID
  11. OMEPRAZOLE [Concomitant]
     Active Substance: OMEPRAZOLE
  12. ELIQUIS [Concomitant]
     Active Substance: APIXABAN
  13. NARCAN [Concomitant]
     Active Substance: NALOXONE HYDROCHLORIDE
  14. BUPRENORPHINE [Concomitant]
     Active Substance: BUPRENORPHINE
  15. VELCADE [Concomitant]
     Active Substance: BORTEZOMIB
  16. DARZALEX [Concomitant]
     Active Substance: DARATUMUMAB

REACTIONS (1)
  - Adverse event [Unknown]
